FAERS Safety Report 20322914 (Version 1)
Quarter: 2022Q1

REPORT INFORMATION
  Report Type: Spontaneous
  Country: US (occurrence: US)
  Receive Date: 20220111
  Receipt Date: 20220111
  Transmission Date: 20220423
  Serious: No
  Sender: FDA-Public Use
  Company Number: US-PFIZER INC-2021515301

PATIENT
  Age: 61 Year
  Sex: Male
  Weight: 97.07 kg

DRUGS (2)
  1. VENLAFAXINE HCL [Suspect]
     Active Substance: VENLAFAXINE HYDROCHLORIDE
     Indication: Bladder irritation
     Dosage: 75 MG, DAILY
     Dates: start: 2004
  2. ATORVASTATIN CALCIUM [Concomitant]
     Active Substance: ATORVASTATIN CALCIUM
     Indication: Bladder irritation
     Dosage: 10 MG, DAILY

REACTIONS (2)
  - Off label use [Unknown]
  - Lactose intolerance [Unknown]

NARRATIVE: CASE EVENT DATE: 20040101
